FAERS Safety Report 9228377 (Version 1)
Quarter: 2013Q2

REPORT INFORMATION
  Report Type: Spontaneous
  Country: PT (occurrence: PT)
  Receive Date: 20130412
  Receipt Date: 20130418
  Transmission Date: 20140414
  Serious: Yes (Hospitalization, Disabling)
  Sender: FDA-Public Use
  Company Number: PT-ROCHE-1211573

PATIENT
  Age: 76 Year
  Sex: Female

DRUGS (9)
  1. RIVOTRIL [Suspect]
     Indication: PRODUCT USED FOR UNKNOWN INDICATION
     Route: 048
     Dates: start: 20130220, end: 20130324
  2. ADT (AMITRIPTYLINE) (UNITED KINGDOM) [Suspect]
     Indication: PRODUCT USED FOR UNKNOWN INDICATION
     Route: 048
     Dates: start: 20130220, end: 20130320
  3. QUETIAPINE [Suspect]
     Indication: PRODUCT USED FOR UNKNOWN INDICATION
     Route: 048
     Dates: start: 20130220, end: 20130320
  4. METFORMIN [Concomitant]
     Route: 048
     Dates: end: 20130320
  5. ESCITALOPRAM [Concomitant]
     Route: 048
     Dates: end: 20130324
  6. LEVOTHYROXINE SODIUM [Concomitant]
     Route: 048
     Dates: end: 20130320
  7. SIMVASTATIN [Concomitant]
     Route: 048
     Dates: end: 20130320
  8. LOSARTAN [Concomitant]
     Route: 048
     Dates: end: 20130320
  9. HYDROCHLOROTHIAZIDE [Concomitant]
     Route: 048
     Dates: end: 20130320

REACTIONS (4)
  - Convulsion [Not Recovered/Not Resolved]
  - Akinesia [Not Recovered/Not Resolved]
  - Delusion [Not Recovered/Not Resolved]
  - Muscle rigidity [Not Recovered/Not Resolved]
